FAERS Safety Report 7755329-6 (Version None)
Quarter: 2011Q3

REPORT INFORMATION
  Report Type: 
  Country: None (occurrence: None)
  Receive Date: 20110916
  Receipt Date: 20110820
  Transmission Date: 20111222
  Serious: No
  Sender: FDA-Public Use
  Company Number: US-JNJFOC-20110412548

PATIENT
  Sex: Male

DRUGS (5)
  1. INVEGA SUSTENNA [Suspect]
     Indication: PSYCHOTIC DISORDER
     Route: 030
     Dates: start: 20110406
  2. INVEGA SUSTENNA [Suspect]
     Route: 030
     Dates: start: 20110201, end: 20110301
  3. ZOLOFT [Concomitant]
     Indication: DEPRESSION
     Route: 065
  4. INVEGA SUSTENNA [Suspect]
     Route: 030
     Dates: start: 20110101, end: 20110101
  5. DEPAKOTE [Concomitant]
     Indication: AFFECTIVE DISORDER
     Route: 065

REACTIONS (2)
  - CONDITION AGGRAVATED [None]
  - HALLUCINATION [None]
